FAERS Safety Report 18215369 (Version 1)
Quarter: 2020Q3

REPORT INFORMATION
  Report Type: Spontaneous
  Country: NL (occurrence: NL)
  Receive Date: 20200831
  Receipt Date: 20200831
  Transmission Date: 20201103
  Serious: Yes (Life-Threatening, Hospitalization, Other)
  Sender: FDA-Public Use
  Company Number: NL-BRISTOL-MYERS SQUIBB COMPANY-BMS-2020-070238

PATIENT
  Age: 34 Year
  Sex: Male
  Weight: 86 kg

DRUGS (2)
  1. NIVOLUMAB [Suspect]
     Active Substance: NIVOLUMAB
     Indication: MALIGNANT MELANOMA
     Dosage: 480 MILLIGRAM, Q4WK
     Route: 065
     Dates: start: 20200316, end: 20200728
  2. LOPERAMIDE [Concomitant]
     Active Substance: LOPERAMIDE
     Indication: PRODUCT USED FOR UNKNOWN INDICATION
     Dosage: SMELTTABLET, 2 MG (MILLIGRAM)

REACTIONS (2)
  - Renal tubular acidosis [Recovering/Resolving]
  - Renal tubular dysfunction [Recovering/Resolving]

NARRATIVE: CASE EVENT DATE: 20200728
